FAERS Safety Report 9863898 (Version 2)
Quarter: 2014Q1

REPORT INFORMATION
  Report Type: Spontaneous
  Country: JP (occurrence: JP)
  Receive Date: 20140203
  Receipt Date: 20140212
  Transmission Date: 20141002
  Serious: Yes (Other)
  Sender: FDA-Public Use
  Company Number: JP-GLAXOSMITHKLINE-B0965598A

PATIENT
  Age: 54 Year
  Sex: Female

DRUGS (5)
  1. ZANTAC [Suspect]
     Indication: PREMEDICATION
     Route: 042
     Dates: start: 201310
  2. ZANTAC [Suspect]
     Indication: PREMEDICATION
     Route: 042
     Dates: start: 20140130, end: 20140130
  3. VENA [Concomitant]
     Route: 048
  4. EMEND [Concomitant]
     Route: 048
  5. DECADRON [Concomitant]
     Route: 065

REACTIONS (3)
  - Anaphylactic reaction [Recovering/Resolving]
  - Nausea [Recovering/Resolving]
  - Nausea [Unknown]
